FAERS Safety Report 10411211 (Version 2)
Quarter: 2014Q3

REPORT INFORMATION
  Report Type: Spontaneous
  Country: US (occurrence: US)
  Receive Date: 20140826
  Receipt Date: 20140826
  Transmission Date: 20150326
  Serious: No
  Sender: FDA-Public Use
  Company Number: US-ASTRAZENECA-2013SE52884

PATIENT
  Age: 88 Year
  Sex: Female
  Weight: 55.8 kg

DRUGS (2)
  1. THYROID PILL [Concomitant]
  2. SYMBICORT [Suspect]
     Active Substance: BUDESONIDE\FORMOTEROL FUMARATE DIHYDRATE
     Indication: CHRONIC OBSTRUCTIVE PULMONARY DISEASE
     Dosage: 80,4.5 MCG, 160 MCG BID
     Route: 055

REACTIONS (3)
  - Intentional product misuse [Unknown]
  - Visual acuity reduced [Unknown]
  - Hypertension [Unknown]
